FAERS Safety Report 8668497 (Version 2)
Quarter: 2014Q4

REPORT INFORMATION
  Report Type: Spontaneous
  Country: US (occurrence: US)
  Receive Date: 20120717
  Receipt Date: 20141023
  Transmission Date: 20150529
  Serious: Yes (Hospitalization, Other)
  Sender: FDA-Public Use
  Company Number: US-GLAXOSMITHKLINE-A0966838A

PATIENT
  Sex: Female

DRUGS (1)
  1. AVANDIA [Suspect]
     Active Substance: ROSIGLITAZONE MALEATE
     Indication: DIABETES MELLITUS
     Dosage: 4 MG, BID
     Route: 048
     Dates: start: 200310, end: 200507

REACTIONS (5)
  - Coronary artery disease [Unknown]
  - Aortic stenosis [Unknown]
  - Catheterisation cardiac [Unknown]
  - Myocardial infarction [Recovered/Resolved]
  - Cardiomyopathy [Unknown]
